FAERS Safety Report 7465760-4 (Version None)
Quarter: 2011Q2

REPORT INFORMATION
  Report Type: 
  Country: None (occurrence: None)
  Receive Date: 20110509
  Receipt Date: 20110429
  Transmission Date: 20111010
  Serious: Yes (Hospitalization)
  Sender: FDA-Public Use
  Company Number: US-ASTRAZENECA-2011SE24801

PATIENT

DRUGS (1)
  1. PRILOSEC [Suspect]
     Route: 048

REACTIONS (1)
  - MENTAL DISORDER [None]
